FAERS Safety Report 24982343 (Version 1)
Quarter: 2025Q1

REPORT INFORMATION
  Report Type: Spontaneous
  Country: CN (occurrence: CN)
  Receive Date: 20250218
  Receipt Date: 20250218
  Transmission Date: 20250409
  Serious: Yes (Other)
  Sender: ROCHE
  Company Number: CN-BoehringerIngelheim-2025-BI-008073

PATIENT
  Age: 72 Year
  Sex: Female

DRUGS (1)
  1. ALTEPLASE [Suspect]
     Active Substance: ALTEPLASE
     Indication: Cerebral infarction
     Route: 040
     Dates: start: 20250204, end: 20250204

REACTIONS (3)
  - Shock [Recovering/Resolving]
  - Dry mouth [Recovering/Resolving]
  - Fibrin D dimer increased [Recovering/Resolving]

NARRATIVE: CASE EVENT DATE: 20250204
